FAERS Safety Report 23153364 (Version 1)
Quarter: 2023Q4

REPORT INFORMATION
  Report Type: Spontaneous
  Country: UA (occurrence: UA)
  Receive Date: 20231107
  Receipt Date: 20231107
  Transmission Date: 20240109
  Serious: Yes (Hospitalization)
  Sender: FDA-Public Use
  Company Number: UA-BAYER-2023A155605

PATIENT
  Age: 24 Year
  Sex: Female

DRUGS (1)
  1. YAZ [Suspect]
     Active Substance: DROSPIRENONE\ETHINYL ESTRADIOL
     Dosage: UNK
     Route: 048
     Dates: start: 202308

REACTIONS (5)
  - Transverse sinus thrombosis [None]
  - Dizziness [None]
  - Hypoaesthesia [None]
  - Muscle contractions involuntary [None]
  - Monoplegia [None]

NARRATIVE: CASE EVENT DATE: 20231018
